FAERS Safety Report 16049290 (Version 1)
Quarter: 2019Q1

REPORT INFORMATION
  Report Type: Spontaneous
  Country: US (occurrence: US)
  Receive Date: 20190307
  Receipt Date: 20190307
  Transmission Date: 20190418
  Serious: No
  Sender: FDA-Public Use
  Company Number: US-TEVA-2019-US-1009901

PATIENT
  Sex: Male

DRUGS (2)
  1. GABAPENTIN CAPSULE [Suspect]
     Active Substance: GABAPENTIN
     Indication: NERVOUS SYSTEM DISORDER
  2. GABAPENTIN CAPSULE [Suspect]
     Active Substance: GABAPENTIN
     Indication: DIZZINESS
     Route: 065

REACTIONS (2)
  - Drug hypersensitivity [Unknown]
  - Product prescribing error [Unknown]
